FAERS Safety Report 13068057 (Version 1)
Quarter: 2016Q4

REPORT INFORMATION
  Report Type: Spontaneous
  Country: US (occurrence: US)
  Receive Date: 20161227
  Receipt Date: 20161227
  Transmission Date: 20170207
  Serious: No
  Sender: FDA-Public Use
  Company Number: None

PATIENT
  Age: 47 Year
  Sex: Female

DRUGS (1)
  1. HUMIRA [Suspect]
     Active Substance: ADALIMUMAB
     Indication: CROHN^S DISEASE
     Dosage: EVERY 14 DAYS
     Route: 058
     Dates: start: 20160901

REACTIONS (4)
  - Alopecia [None]
  - Fatigue [None]
  - Nausea [None]
  - Energy increased [None]

NARRATIVE: CASE EVENT DATE: 20161108
